FAERS Safety Report 24232283 (Version 2)
Quarter: 2024Q3

REPORT INFORMATION
  Report Type: Spontaneous
  Country: TW (occurrence: TW)
  Receive Date: 20240821
  Receipt Date: 20240829
  Transmission Date: 20241017
  Serious: Yes (Hospitalization)
  Sender: ROCHE
  Company Number: TW-BoehringerIngelheim-2024-BI-045954

PATIENT
  Age: 70 Year
  Sex: Male

DRUGS (2)
  1. ALTEPLASE [Suspect]
     Active Substance: ALTEPLASE
     Indication: Thrombosis
     Dosage: INTRAVENOUS ADMINISTRATION OF TPA TREATMENT AT 0.9 MG PER KILOGRAM OF BODY WEIGHT (OF WHICH 0.09 MG/
     Route: 042
  2. ALTEPLASE [Suspect]
     Active Substance: ALTEPLASE
     Dosage: THE REMAINING DOSE IS INFUSED WITHIN 60 MINUTES
     Route: 042

REACTIONS (2)
  - Cerebral artery occlusion [Recovered/Resolved with Sequelae]
  - Neurological decompensation [Recovered/Resolved]
